FAERS Safety Report 15379059 (Version 1)
Quarter: 2018Q3

REPORT INFORMATION
  Report Type: Spontaneous
  Country: US (occurrence: US)
  Receive Date: 20180906
  Receipt Date: 20180906
  Transmission Date: 20181010
  Serious: No
  Sender: FDA-Public Use
  Company Number: None

PATIENT
  Age: 76 Year
  Sex: Female
  Weight: 77.11 kg

DRUGS (3)
  1. AMOXICILLIN 875MG TABLET(PINK) 1 EVERY 12 HOURS FOR 10 DAYS [Suspect]
     Active Substance: AMOXICILLIN
     Indication: SINUSITIS
     Dosage: ?          QUANTITY:1;?
     Route: 048
     Dates: start: 20180731, end: 20180801
  2. LIPITOR [Concomitant]
     Active Substance: ATORVASTATIN CALCIUM
  3. AMOXICILLIN 875MG TABLET(PINK) 1 EVERY 12 HOURS FOR 10 DAYS [Suspect]
     Active Substance: AMOXICILLIN
     Indication: EAR DISORDER
     Dosage: ?          QUANTITY:1;?
     Route: 048
     Dates: start: 20180731, end: 20180801

REACTIONS (7)
  - Mouth swelling [None]
  - Oral candidiasis [None]
  - No reaction on previous exposure to drug [None]
  - Cellulitis [None]
  - Pain [None]
  - Sialoadenitis [None]
  - Salivary gland enlargement [None]

NARRATIVE: CASE EVENT DATE: 20180801
